FAERS Safety Report 6958488-8 (Version None)
Quarter: 2010Q3

REPORT INFORMATION
  Report Type: 
  Country: None (occurrence: None)
  Receive Date: 20100831
  Receipt Date: 20100823
  Transmission Date: 20110219
  Serious: Yes (Death)
  Sender: FDA-Public Use
  Company Number: GXKR2010US09426

PATIENT
  Age: 48 Year
  Sex: Female

DRUGS (8)
  1. FENTANYL (NGX) [Interacting]
     Dosage: 1 DF, Q72H PRESCRIBED
     Route: 062
  2. FLUOXETINE [Interacting]
     Route: 065
  3. MECLIZINE (NGX) [Interacting]
     Route: 065
  4. THEOPHYLLINE (NGX) [Interacting]
     Route: 065
  5. PARACETAMOL (NGX) [Interacting]
     Route: 065
  6. HYDROCODONE [Interacting]
     Route: 065
  7. DULOXETINE HYDROCHLORIDE [Interacting]
     Route: 065
  8. NORFLUOXETINE [Suspect]

REACTIONS (5)
  - DIZZINESS [None]
  - DRUG LEVEL ABOVE THERAPEUTIC [None]
  - DRUG TOXICITY [None]
  - DYSARTHRIA [None]
  - PAIN IN EXTREMITY [None]
